FAERS Safety Report 14769097 (Version 1)
Quarter: 2018Q2

REPORT INFORMATION
  Report Type: Spontaneous
  Country: GR (occurrence: US)
  Receive Date: 20180417
  Receipt Date: 20180417
  Transmission Date: 20180711
  Serious: Yes (Hospitalization)
  Sender: FDA-Public Use
  Company Number: GR-MYLANLABS-2018M1023755

PATIENT
  Age: 31 Year
  Sex: Male

DRUGS (3)
  1. DOXYCYCLINE. [Suspect]
     Active Substance: DOXYCYCLINE
     Indication: SYPHILIS
     Route: 065
  2. BENZATHINE PENICILLIN G [Suspect]
     Active Substance: PENICILLIN G BENZATHINE
     Indication: SYPHILIS
     Dosage: TWO INJECTIONS
     Route: 030
  3. TETRACYCLINE [Suspect]
     Active Substance: TETRACYCLINE
     Indication: SYPHILIS
     Route: 065

REACTIONS (3)
  - Acute generalised exanthematous pustulosis [Unknown]
  - Jarisch-Herxheimer reaction [Recovering/Resolving]
  - Psoriasis [Unknown]
